FAERS Safety Report 9325197 (Version 1)
Quarter: 2013Q2

REPORT INFORMATION
  Report Type: Spontaneous
  Country: BR (occurrence: BR)
  Receive Date: 20130604
  Receipt Date: 20130604
  Transmission Date: 20140414
  Serious: Yes (Other)
  Sender: FDA-Public Use
  Company Number: BR-AMGEN-BRASP2012033592

PATIENT
  Age: 10 Year
  Sex: Male
  Weight: 63 kg

DRUGS (2)
  1. ENBREL [Suspect]
     Indication: JUVENILE IDIOPATHIC ARTHRITIS
     Dosage: 50 MG, QWK
     Route: 058
     Dates: start: 20120515
  2. METHOTREXATE [Concomitant]
     Indication: JUVENILE IDIOPATHIC ARTHRITIS
     Dosage: 1 MG, UNK

REACTIONS (4)
  - Mobility decreased [Unknown]
  - Pain [Unknown]
  - Influenza [Not Recovered/Not Resolved]
  - Injection site pain [Unknown]
